FAERS Safety Report 5199862-2 (Version None)
Quarter: 2007Q1

REPORT INFORMATION
  Report Type: 
  Country: None (occurrence: None)
  Receive Date: 20070105
  Receipt Date: 20061226
  Transmission Date: 20070707
  Serious: Yes (Hospitalization)
  Sender: FDA-Public Use
  Company Number: US-AMGEN-US204866

PATIENT
  Sex: Female

DRUGS (2)
  1. ENBREL [Suspect]
     Indication: RHEUMATOID ARTHRITIS
     Route: 058
     Dates: start: 20060901
  2. METHOTREXATE [Concomitant]
     Route: 065
     Dates: start: 20060901

REACTIONS (3)
  - CHRONIC SINUSITIS [None]
  - HEADACHE [None]
  - WHITE BLOOD CELL COUNT INCREASED [None]
